FAERS Safety Report 8306610-3 (Version None)
Quarter: 2012Q1

REPORT INFORMATION
  Report Type: 
  Country: None (occurrence: None)
  Receive Date: 20120327
  Receipt Date: 20091222
  Transmission Date: 20120608
  Serious: Yes (Disabling)
  Sender: FDA-Public Use
  Company Number: PHEH2009US17580

PATIENT
  Age: 74 Year
  Sex: Female

DRUGS (12)
  1. POTASSIUM CHLORIDE [Concomitant]
  2. ZOLOFT [Concomitant]
  3. GLEEVEC [Suspect]
     Indication: CHRONIC MYELOID LEUKAEMIA
     Dosage: 400 MG DAILY, ORAL; 100 MG DAILY, ORAL; 400 MG DAILY, ORAL
     Route: 048
     Dates: end: 20091126
  4. GLEEVEC [Suspect]
     Indication: CHRONIC MYELOID LEUKAEMIA
     Dosage: 400 MG DAILY, ORAL; 100 MG DAILY, ORAL; 400 MG DAILY, ORAL
     Route: 048
     Dates: start: 20091116
  5. CADUET [Concomitant]
  6. CALCIUM WITH VITAMIN D (CALCIUM PHOSPHATE, CALCIUM SODIUM LACTATE, ERG [Concomitant]
  7. PREDNISOLONE [Concomitant]
  8. LORTAB [Concomitant]
  9. SYNTHROID [Concomitant]
  10. LISINOPRIL [Concomitant]
  11. LASIX [Concomitant]
  12. LEVOTHYROXINE SODIUM [Concomitant]

REACTIONS (7)
  - BLOOD LACTATE DEHYDROGENASE INCREASED [None]
  - BLOOD GLUCOSE INCREASED [None]
  - DEPRESSED MOOD [None]
  - FATIGUE [None]
  - ARTHRALGIA [None]
  - ANXIETY [None]
  - RASH PRURITIC [None]
